FAERS Safety Report 5189369-0 (Version None)
Quarter: 2006Q4

REPORT INFORMATION
  Report Type: 
  Country: None (occurrence: None)
  Receive Date: 20061221
  Receipt Date: 20061218
  Transmission Date: 20070319
  Serious: Yes (Death)
  Sender: FDA-Public Use
  Company Number: MY-MERCK-0612MYS00007

PATIENT
  Age: 75 Year
  Sex: Male

DRUGS (1)
  1. INVANZ [Suspect]
     Indication: PNEUMONIA
     Route: 042
     Dates: start: 20061001, end: 20061001

REACTIONS (2)
  - DRUG INEFFECTIVE [None]
  - PNEUMONIA [None]
